FAERS Safety Report 16483059 (Version 1)
Quarter: 2019Q2

REPORT INFORMATION
  Report Type: Spontaneous
  Country: US (occurrence: US)
  Receive Date: 20190515
  Receipt Date: 20190515
  Transmission Date: 20190711
  Serious: No
  Sender: FDA-Public Use
  Company Number: None

PATIENT
  Age: 62 Year
  Sex: Male
  Weight: 57.61 kg

DRUGS (5)
  1. VITAMIN C [Concomitant]
     Active Substance: ASCORBIC ACID
  2. LOW DOSE ASPIRIN [Concomitant]
     Active Substance: ASPIRIN
  3. MULTI VITAMINS [Concomitant]
     Active Substance: VITAMINS
  4. REPATHA [Suspect]
     Active Substance: EVOLOCUMAB
     Indication: BLOOD CHOLESTEROL INCREASED
     Dosage: ?          QUANTITY:1 DF DOSAGE FORM;?
     Route: 058
     Dates: start: 20181201, end: 20190201
  5. IRON [Concomitant]
     Active Substance: IRON

REACTIONS (5)
  - Peripheral swelling [None]
  - Musculoskeletal pain [None]
  - Aphonia [None]
  - Muscle spasms [None]
  - Pain [None]
